FAERS Safety Report 17037707 (Version 11)
Quarter: 2022Q3

REPORT INFORMATION
  Report Type: Report from Study
  Country: US (occurrence: None)
  Receive Date: 20191115
  Receipt Date: 20220829
  Transmission Date: 20221027
  Serious: Yes (Other)
  Sender: FDA-Public Use
  Company Number: US-ROCHE-2360553

PATIENT
  Age: 77 Year
  Sex: Male
  Weight: 88 kg

DRUGS (17)
  1. RANIBIZUMAB [Suspect]
     Active Substance: RANIBIZUMAB
     Indication: Neovascular age-related macular degeneration
     Dosage: ON 26/FEB/2019, HE RECEIVED MOST RECENT DOSE 100 MG/ML EVERY 24 WEEKS PRIOR TO AE (ADVERSE EVENT) AN
     Route: 050
     Dates: start: 20190226
  2. RANIBIZUMAB [Suspect]
     Active Substance: RANIBIZUMAB
  3. RANIBIZUMAB [Suspect]
     Active Substance: RANIBIZUMAB
  4. RANIBIZUMAB [Suspect]
     Active Substance: RANIBIZUMAB
  5. RANIBIZUMAB [Suspect]
     Active Substance: RANIBIZUMAB
  6. RANIBIZUMAB [Suspect]
     Active Substance: RANIBIZUMAB
  7. RANIBIZUMAB [Concomitant]
     Active Substance: RANIBIZUMAB
     Dosage: SPONSOR SUPPLIED FELLOW EYE 10 MG/ML?ON 19 /JUL/2019, HE RECEIVED MOST RECENT DOSE 10 MG/ML OF SPONS
     Route: 042
     Dates: start: 20190227
  8. ATORVASTATIN [Concomitant]
     Active Substance: ATORVASTATIN
     Indication: Hyperlipidaemia
     Route: 048
     Dates: start: 20041104
  9. VITAMIN D3 [Concomitant]
     Active Substance: CHOLECALCIFEROL
     Indication: Osteoarthritis
     Dosage: 2000 U (UNIT)
     Route: 048
     Dates: start: 20111005, end: 20190907
  10. VITAMIN D3 [Concomitant]
     Active Substance: CHOLECALCIFEROL
     Route: 048
     Dates: start: 20190907
  11. LISINOPRIL [Concomitant]
     Active Substance: LISINOPRIL
     Indication: Hypertension
     Route: 048
     Dates: start: 20131126, end: 20190930
  12. LISINOPRIL [Concomitant]
     Active Substance: LISINOPRIL
     Route: 048
     Dates: start: 20190930
  13. CIALIS [Concomitant]
     Active Substance: TADALAFIL
     Route: 048
     Dates: start: 20050914, end: 2019
  14. OFLOXACIN [Concomitant]
     Active Substance: OFLOXACIN
     Route: 061
     Dates: start: 20190815, end: 20190817
  15. AREDS 2 FORMULA [Concomitant]
     Indication: Macular degeneration
     Route: 048
     Dates: start: 20161107
  16. ARTIFICIAL TEARS [Concomitant]
     Active Substance: GLYCERIN\HYPROMELLOSES\POLYETHYLENE GLYCOL 400
     Indication: Eye irritation
     Route: 061
     Dates: start: 2017
  17. ANTIMICROBIALS (UNK INGREDIENTS) [Concomitant]

REACTIONS (1)
  - Vitreous haemorrhage [Recovered/Resolved]

NARRATIVE: CASE EVENT DATE: 20190719
